FAERS Safety Report 26089987 (Version 1)
Quarter: 2025Q4

REPORT INFORMATION
  Report Type: Report from Study
  Country: RS (occurrence: RS)
  Receive Date: 20251126
  Receipt Date: 20251126
  Transmission Date: 20260117
  Serious: Yes (Other)
  Sender: EMD SERONO INC
  Company Number: RS-Merck Healthcare KGaA-2025060199

PATIENT
  Age: 9 Year
  Sex: Male
  Weight: 36 kg

DRUGS (2)
  1. SAIZEN [Suspect]
     Active Substance: SOMATROPIN
     Indication: Small for dates baby
     Dosage: SERIAL NUMBER (SN) 2335169100008741
     Dates: start: 20240526, end: 20251119
  2. SAIZEN [Suspect]
     Active Substance: SOMATROPIN

REACTIONS (1)
  - Testicular disorder [Recovered/Resolved with Sequelae]
